FAERS Safety Report 8345610-4 (Version None)
Quarter: 2012Q2

REPORT INFORMATION
  Report Type: 
  Country: None (occurrence: None)
  Receive Date: 20120508
  Receipt Date: 20120426
  Transmission Date: 20120825
  Serious: Yes (Hospitalization)
  Sender: FDA-Public Use
  Company Number: NL-ROCHE-725881

PATIENT
  Sex: Male
  Weight: 66.9 kg

DRUGS (14)
  1. COPEGUS [Suspect]
     Indication: HEPATITIS C
     Dosage: LAST DOSE PRIOR TO 2ND EPISODE OF PSORIASIS: 04/JAN/2011, AUTO-INTOXICATION: 05/AUG/2010. DOSE REPOR
     Route: 048
  2. PEGASYS [Suspect]
     Indication: HEPATITIS C
     Dosage: LAST DOSE PRIOR TO AUTO-INTOXICATION: 03/AUG/2010
     Route: 058
  3. PEGASYS [Suspect]
     Dosage: LAST DOSE PRIOR TO 2ND EPISODE OF PSORIASIS: 28/DEC/2010
     Route: 058
  4. CHLOORTALIDON [Concomitant]
  5. CALCIPOTRIENE [Concomitant]
  6. SEROQUEL [Concomitant]
  7. METFORMIN [Concomitant]
  8. DOVOBET [Concomitant]
  9. OXAZEPAM [Concomitant]
  10. METOPROLOL TARTRATE [Concomitant]
  11. TESACOF [Concomitant]
     Dosage: DRUG REPORTED: TEESCALF.
  12. LAMOTRIGINE [Concomitant]
  13. CLOBETASOL PROPIONATE [Concomitant]
  14. ACITRETIN [Concomitant]
     Dates: start: 20100915

REACTIONS (2)
  - TOXICITY TO VARIOUS AGENTS [None]
  - PSORIASIS [None]
